FAERS Safety Report 5925435-7 (Version None)
Quarter: 2008Q4

REPORT INFORMATION
  Report Type: 
  Country: None (occurrence: None)
  Receive Date: 20081021
  Receipt Date: 20081006
  Transmission Date: 20090506
  Serious: Yes (Hospitalization)
  Sender: FDA-Public Use
  Company Number: US-MERCK-0810USA00812

PATIENT
  Sex: Female

DRUGS (6)
  1. JANUVIA [Suspect]
     Indication: TYPE 2 DIABETES MELLITUS
     Route: 048
     Dates: end: 20080101
  2. METFORMIN [Concomitant]
     Route: 065
  3. ACTOS [Concomitant]
     Route: 065
     Dates: end: 20080101
  4. LANTUS [Concomitant]
     Route: 065
     Dates: end: 20080101
  5. NOVOLOG [Concomitant]
     Route: 065
     Dates: end: 20080101
  6. GLIPIZIDE [Concomitant]
     Route: 065
     Dates: end: 20080101

REACTIONS (1)
  - PNEUMONIA [None]
